FAERS Safety Report 8301368-6 (Version None)
Quarter: 2012Q2

REPORT INFORMATION
  Report Type: 
  Country: None (occurrence: None)
  Receive Date: 20120420
  Receipt Date: 20120413
  Transmission Date: 20120825
  Serious: Yes (Other)
  Sender: FDA-Public Use
  Company Number: US-ABBOTT-11P-163-0878985-00

PATIENT
  Sex: Male
  Weight: 98.064 kg

DRUGS (15)
  1. VIT C [Concomitant]
     Indication: PRODUCT USED FOR UNKNOWN INDICATION
  2. HUMIRA [Suspect]
     Indication: CROHN'S DISEASE
     Dosage: DAY 1 LOADING DOSE
     Route: 058
     Dates: start: 20111117, end: 20111117
  3. VITAMIN D [Concomitant]
     Indication: PRODUCT USED FOR UNKNOWN INDICATION
  4. VICODIN [Concomitant]
     Indication: PLANTAR FASCIITIS
     Dosage: 5/500 MG PRN
     Route: 048
  5. COLESTIMINE POWDER [Concomitant]
     Indication: PRODUCT USED FOR UNKNOWN INDICATION
     Dosage: DAILY
  6. HUMIRA [Suspect]
     Dosage: 80 MG LAST DOSE
     Dates: start: 20111201, end: 20111201
  7. FISH OIL [Concomitant]
     Indication: PRODUCT USED FOR UNKNOWN INDICATION
  8. CARDIZEM [Concomitant]
     Indication: HEART RATE IRREGULAR
     Dosage: 2 PO BID
  9. FLECTOR [Concomitant]
     Indication: INFLAMMATION
     Dosage: 1.3 %
     Route: 062
  10. TEMAZEPAM [Concomitant]
     Indication: INSOMNIA
     Dosage: AT NIGHT
     Route: 048
  11. POTASSIUM CHLORIDE [Concomitant]
     Indication: PRODUCT USED FOR UNKNOWN INDICATION
  12. CLOZAPINE [Concomitant]
     Indication: DEPRESSION
  13. VICODIN [Concomitant]
     Indication: PAIN IN EXTREMITY
  14. CITALOPRAM HYDROBROMIDE [Concomitant]
     Indication: PRODUCT USED FOR UNKNOWN INDICATION
     Dosage: 20 MG DAILY
     Route: 048
  15. CALCIUM CARBONATE [Concomitant]
     Indication: PRODUCT USED FOR UNKNOWN INDICATION

REACTIONS (14)
  - TENDERNESS [None]
  - NERVE COMPRESSION [None]
  - PLANTAR FASCIITIS [None]
  - TESTICULAR CYST [None]
  - SLEEP DISORDER [None]
  - UNEVALUABLE EVENT [None]
  - NAUSEA [None]
  - PAIN [None]
  - TENDONITIS [None]
  - TESTICULAR SWELLING [None]
  - ANXIETY [None]
  - DISCOMFORT [None]
  - THERAPEUTIC RESPONSE UNEXPECTED [None]
  - INTERVERTEBRAL DISC PROTRUSION [None]
